FAERS Safety Report 7370422-8 (Version None)
Quarter: 2011Q1

REPORT INFORMATION
  Report Type: 
  Country: None (occurrence: None)
  Receive Date: 20110323
  Receipt Date: 20110308
  Transmission Date: 20110831
  Serious: Yes (Life-Threatening, Other)
  Sender: FDA-Public Use
  Company Number: US-PURDUE-USA-2011-0063274

PATIENT
  Sex: Female

DRUGS (3)
  1. LITHIUM [Suspect]
     Indication: PRODUCT USED FOR UNKNOWN INDICATION
  2. MORPHINE SULFATE EXTENDED-RELEASE TABLETS (WATSON 74-769) [Suspect]
     Dosage: 900 MG, DAILY
  3. VALIUM [Concomitant]
     Indication: PRODUCT USED FOR UNKNOWN INDICATION

REACTIONS (13)
  - RESPIRATORY FAILURE [None]
  - NAUSEA [None]
  - OVERDOSE [None]
  - THERAPEUTIC RESPONSE INCREASED [None]
  - HYPERHIDROSIS [None]
  - DRUG INEFFECTIVE [None]
  - DRUG WITHDRAWAL SYNDROME [None]
  - VOMITING [None]
  - DIARRHOEA [None]
  - CARDIO-RESPIRATORY ARREST [None]
  - OROPHARYNGEAL PAIN [None]
  - HEADACHE [None]
  - DRUG EFFECT DECREASED [None]
